FAERS Safety Report 7968303-1 (Version None)
Quarter: 2011Q4

REPORT INFORMATION
  Report Type: 
  Country: None (occurrence: None)
  Receive Date: 20111122
  Receipt Date: 20110818
  Transmission Date: 20120403
  Serious: No
  Sender: FDA-Public Use
  Company Number: PHHY2011US63850

PATIENT
  Age: 36 Year
  Sex: Male

DRUGS (4)
  1. GILENYA [Suspect]
     Indication: MULTIPLE SCLEROSIS
     Dosage: 0.5 MG, QD, ORAL
     Route: 048
     Dates: start: 20110704
  2. WELLBUTRIN [Concomitant]
  3. VITAMINS NOS (VITAMINS NOS) [Concomitant]
  4. ZOLOFT [Concomitant]

REACTIONS (3)
  - DYSGEUSIA [None]
  - ACNE [None]
  - DERMATITIS ACNEIFORM [None]
